FAERS Safety Report 6026316-3 (Version None)
Quarter: 2008Q4

REPORT INFORMATION
  Report Type: 
  Country: None (occurrence: None)
  Receive Date: 20081230
  Receipt Date: 20081212
  Transmission Date: 20090506
  Serious: Yes (Other)
  Sender: FDA-Public Use
  Company Number: DSU-2008-02172

PATIENT
  Age: 49 Year
  Sex: Female

DRUGS (1)
  1. OLMESARTAN MEDOXOMIL [Suspect]
     Indication: HYPERTENSION
     Dosage: 20 MG (20 MG, QD), PER ORAL
     Route: 048
     Dates: start: 20080701, end: 20081130

REACTIONS (2)
  - ANXIETY [None]
  - PROTEINURIA [None]
